FAERS Safety Report 16043270 (Version 2)
Quarter: 2019Q1

REPORT INFORMATION
  Report Type: Report from Study
  Country: US (occurrence: US)
  Receive Date: 20190306
  Receipt Date: 20190313
  Transmission Date: 20190418
  Serious: Yes (Death, Hospitalization, Other)
  Sender: FDA-Public Use
  Company Number: US-JNJFOC-20190305011

PATIENT
  Age: 67 Year
  Sex: Male

DRUGS (14)
  1. ACYCLOVIR. [Concomitant]
     Active Substance: ACYCLOVIR
  2. CALCITRIOL. [Concomitant]
     Active Substance: CALCITRIOL
  3. IMBRUVICA [Suspect]
     Active Substance: IBRUTINIB
     Indication: CHRONIC LYMPHOCYTIC LEUKAEMIA
     Route: 048
     Dates: start: 20180510, end: 20190130
  4. KLONOPIN [Concomitant]
     Active Substance: CLONAZEPAM
  5. VITAMIN D3 [Concomitant]
     Active Substance: CHOLECALCIFEROL
  6. BACTRIM [Concomitant]
     Active Substance: SULFAMETHOXAZOLE\TRIMETHOPRIM
  7. TORSEMIDE. [Concomitant]
     Active Substance: TORSEMIDE
  8. POTASSIUM CHLORIDE. [Concomitant]
     Active Substance: POTASSIUM CHLORIDE
  9. METOPROLOL. [Concomitant]
     Active Substance: METOPROLOL
  10. VALIUM [Concomitant]
     Active Substance: DIAZEPAM
  11. SIMVASTATIN. [Concomitant]
     Active Substance: SIMVASTATIN
  12. LOSARTAN. [Concomitant]
     Active Substance: LOSARTAN
  13. NIFEDIPINE. [Concomitant]
     Active Substance: NIFEDIPINE
  14. SPIRONOLACTONE. [Concomitant]
     Active Substance: SPIRONOLACTONE

REACTIONS (2)
  - Cerebrovascular accident [Unknown]
  - Death [Fatal]

NARRATIVE: CASE EVENT DATE: 20190129
